FAERS Safety Report 5432281-X (Version None)
Quarter: 2007Q3

REPORT INFORMATION
  Report Type: 
  Country: None (occurrence: None)
  Receive Date: 20070830
  Receipt Date: 20070823
  Transmission Date: 20080115
  Serious: Yes (Other)
  Sender: FDA-Public Use
  Company Number: US-PFIZER INC-2007070483

PATIENT
  Sex: Female
  Weight: 77.1 kg

DRUGS (8)
  1. CORTEF [Suspect]
     Indication: ADDISON'S DISEASE
  2. FLORINEF [Concomitant]
     Indication: BLOOD PRESSURE MANAGEMENT
  3. FLORINEF [Concomitant]
     Indication: ELECTROLYTE IMBALANCE
  4. NEURONTIN [Concomitant]
  5. SYNTHROID [Concomitant]
     Dosage: DAILY DOSE:112
  6. PREDNISONE [Concomitant]
     Dosage: DAILY DOSE:5MG
  7. ESTRACE [Concomitant]
  8. HYDROCORTISONE [Concomitant]

REACTIONS (8)
  - ASTHENIA [None]
  - DYSPHAGIA [None]
  - FATIGUE [None]
  - FEELING ABNORMAL [None]
  - HYSTERECTOMY [None]
  - NAUSEA [None]
  - NEOPLASM [None]
  - THYROIDECTOMY [None]
